FAERS Safety Report 7627658-8 (Version None)
Quarter: 2011Q3

REPORT INFORMATION
  Report Type: 
  Country: None (occurrence: None)
  Receive Date: 20110721
  Receipt Date: 20110715
  Transmission Date: 20111222
  Serious: Yes (Death, Hospitalization)
  Sender: FDA-Public Use
  Company Number: US-CELGENEUS-163-21880-11071506

PATIENT
  Sex: Female
  Weight: 54.026 kg

DRUGS (1)
  1. REVLIMID [Suspect]
     Indication: MULTIPLE MYELOMA
     Dosage: 25 MILLIGRAM
     Route: 048
     Dates: start: 20110601, end: 20110101

REACTIONS (4)
  - HYPERTENSION [None]
  - GASTROINTESTINAL NECROSIS [None]
  - ANAEMIA [None]
  - DEATH [None]
